FAERS Safety Report 14966158 (Version 1)
Quarter: 2018Q2

REPORT INFORMATION
  Report Type: Report from Study
  Country: DE (occurrence: DE)
  Receive Date: 20180603
  Receipt Date: 20180603
  Transmission Date: 20180711
  Serious: Yes (Hospitalization, Other)
  Sender: FDA-Public Use
  Company Number: PHHY2018DE076529

PATIENT
  Sex: Male

DRUGS (11)
  1. ACICLOVIR [Suspect]
     Active Substance: ACYCLOVIR
     Indication: HERPES ZOSTER
     Dosage: ADMINISTERED TWICE
     Route: 042
     Dates: end: 20171002
  2. ACICLOVIR [Suspect]
     Active Substance: ACYCLOVIR
     Indication: RADICULOPATHY
     Route: 042
     Dates: start: 20170919
  3. CANDESARTAN. [Concomitant]
     Active Substance: CANDESARTAN
     Indication: BLOOD PRESSURE INCREASED
  4. JAKAVI [Suspect]
     Active Substance: RUXOLITINIB
     Indication: PRIMARY MYELOFIBROSIS
     Dosage: 30 MG, QD (15 MG, 1-0-1)
     Route: 048
     Dates: start: 20170621
  5. ASPIRIN. [Concomitant]
     Active Substance: ASPIRIN
     Indication: CORONARY ARTERY DISEASE
     Dosage: 100 MG, QD (0-1-0)
     Route: 065
  6. TORASEMIDE [Concomitant]
     Active Substance: TORSEMIDE
     Indication: PRODUCT USED FOR UNKNOWN INDICATION
     Dosage: 10 MG, QD (0.5-0-1.5)
     Route: 065
  7. THYRONAJOD [Concomitant]
     Active Substance: LEVOTHYROXINE SODIUM\POTASSIUM IODIDE
     Indication: HYPOTHYROIDISM
     Dosage: 75 UG, QD (1-0-0)
     Route: 065
  8. METOPROLOL. [Concomitant]
     Active Substance: METOPROLOL
     Indication: HYPERTENSION
     Dosage: 180 MG, QD (95 MG, 1-0-1)
     Route: 065
  9. CANDESARTAN. [Concomitant]
     Active Substance: CANDESARTAN
     Indication: HYPERTENSION
     Dosage: 12 MG, QD (8MG, 1-0-1/2)
     Route: 065
  10. SIMVASTATIN. [Concomitant]
     Active Substance: SIMVASTATIN
     Indication: HYPERCHOLESTEROLAEMIA
     Dosage: 20 MG, QD (0-0-1)
     Route: 065
  11. PANTOPRAZOLE [Concomitant]
     Active Substance: PANTOPRAZOLE
     Indication: PRODUCT USED FOR UNKNOWN INDICATION
     Dosage: 40 MG, QD (1-0-0)
     Route: 065

REACTIONS (13)
  - Varicella zoster virus infection [Recovering/Resolving]
  - Neuropathy peripheral [Unknown]
  - Paresis [Unknown]
  - Microangiopathy [Unknown]
  - Neuralgia [Unknown]
  - Blood pressure increased [Unknown]
  - Radiculopathy [Recovering/Resolving]
  - Vertebral artery stenosis [Unknown]
  - Back pain [Unknown]
  - Cerebral ischaemia [Unknown]
  - Rash [Unknown]
  - Blood creatinine increased [Recovering/Resolving]
  - Muscle twitching [Unknown]

NARRATIVE: CASE EVENT DATE: 20170918
